FAERS Safety Report 9888206 (Version 1)
Quarter: 2014Q1

REPORT INFORMATION
  Report Type: Spontaneous
  Country: IT (occurrence: IT)
  Receive Date: 20140211
  Receipt Date: 20140211
  Transmission Date: 20141002
  Serious: Yes (Hospitalization)
  Sender: FDA-Public Use
  Company Number: IT-TEVA-460967ISR

PATIENT
  Age: 70 Year
  Sex: Female
  Weight: 73 kg

DRUGS (3)
  1. FLUOROURACILE TEVA [Suspect]
     Indication: PANCREATIC CARCINOMA
     Dosage: 3200 MG/M2 DAILY;
     Route: 042
     Dates: start: 20130918, end: 20131122
  2. IRINOTECAN KABI [Suspect]
     Indication: PANCREATIC CARCINOMA
     Dosage: 240 MG/M2 DAILY; CONCENTRATE FOR SOLUTION INTRAVENOUS INFUSION
     Route: 042
     Dates: start: 20130918, end: 20131122
  3. OXALIPLATINO ACCORD [Suspect]
     Indication: PANCREATIC CARCINOMA
     Dosage: 110 MG/M2 DAILY; CONCENTRATE FOR SOLUTION FOR INFUSION
     Route: 042
     Dates: start: 20130918, end: 20131122

REACTIONS (1)
  - Subcutaneous abscess [Recovering/Resolving]
